FAERS Safety Report 14630105 (Version 2)
Quarter: 2018Q2

REPORT INFORMATION
  Report Type: Spontaneous
  Country: US (occurrence: US)
  Receive Date: 20180313
  Receipt Date: 20180521
  Transmission Date: 20180711
  Serious: Yes (Hospitalization)
  Sender: FDA-Public Use
  Company Number: US-PFIZER INC-2018098192

PATIENT
  Age: 79 Year
  Sex: Male
  Weight: 90.7 kg

DRUGS (1)
  1. SUTENT [Suspect]
     Active Substance: SUNITINIB MALATE
     Indication: METASTATIC RENAL CELL CARCINOMA
     Dosage: 50 MG, 1X/DAY(QD X 21 DAYS)
     Route: 048
     Dates: start: 20180203, end: 20180223

REACTIONS (16)
  - Diarrhoea [Recovered/Resolved]
  - Stomatitis [Unknown]
  - Eructation [Unknown]
  - Platelet count decreased [Unknown]
  - Nausea [Recovered/Resolved]
  - Fatigue [Unknown]
  - Erectile dysfunction [Unknown]
  - Decreased appetite [Unknown]
  - Dyspepsia [Unknown]
  - Throat clearing [Unknown]
  - Asthenia [Unknown]
  - Blood pressure increased [Recovered/Resolved]
  - Epistaxis [Unknown]
  - Dysgeusia [Unknown]
  - Cough [Unknown]
  - Retching [Recovered/Resolved]
